FAERS Safety Report 25310000 (Version 2)
Quarter: 2025Q4

REPORT INFORMATION
  Report Type: Report from Study
  Country: US (occurrence: US)
  Receive Date: 20250514
  Receipt Date: 20251127
  Transmission Date: 20260117
  Serious: Yes (Hospitalization, Other)
  Sender: BOEHRINGER INGELHEIM
  Company Number: US-BoehringerIngelheim-2024-BI-031859

PATIENT
  Age: 64 Year
  Sex: Female

DRUGS (3)
  1. OFEV [Suspect]
     Active Substance: NINTEDANIB
     Indication: Idiopathic pulmonary fibrosis
     Dates: start: 20240526, end: 20241105
  2. OFEV [Suspect]
     Active Substance: NINTEDANIB
     Indication: Interstitial lung disease
  3. TYVASO [Concomitant]
     Active Substance: TREPROSTINIL
     Indication: Product used for unknown indication

REACTIONS (11)
  - Pulmonary hypertension [Not Recovered/Not Resolved]
  - Dehydration [Unknown]
  - Diverticulitis [Unknown]
  - Gastrointestinal disorder [Recovering/Resolving]
  - Diarrhoea [Not Recovered/Not Resolved]
  - Diarrhoea [Recovered/Resolved]
  - Diverticulitis [Recovered/Resolved]
  - Dehydration [Recovered/Resolved]
  - Hepatic enzyme increased [Not Recovered/Not Resolved]
  - Immunosuppression [Not Recovered/Not Resolved]
  - Fungal infection [Unknown]

NARRATIVE: CASE EVENT DATE: 20240501
